FAERS Safety Report 18517996 (Version 3)
Quarter: 2021Q3

REPORT INFORMATION
  Report Type: Spontaneous
  Country: US (occurrence: US)
  Receive Date: 20201118
  Receipt Date: 20210908
  Transmission Date: 20211014
  Serious: No
  Sender: FDA-Public Use
  Company Number: US-PFIZER INC-2020449785

PATIENT
  Age: 56 Year
  Sex: Female

DRUGS (6)
  1. LITHIUM CARBONATE. [Concomitant]
     Active Substance: LITHIUM CARBONATE
  2. LETROZOLE. [Concomitant]
     Active Substance: LETROZOLE
  3. IBRANCE [Suspect]
     Active Substance: PALBOCICLIB
     Indication: BREAST CANCER FEMALE
     Dosage: UNK, CYCLIC
     Route: 048
     Dates: start: 202006
  4. IBRANCE [Suspect]
     Active Substance: PALBOCICLIB
     Dosage: 125 MG, TAKE 1 TABLET BY MOUTH DAILY FOR 21 CONSECTIVE DAYS , FOLLOWED BY 7 DAYS OFF
     Route: 048
  5. HYDROCHLOROTHIAZIDE. [Concomitant]
     Active Substance: HYDROCHLOROTHIAZIDE
  6. ASPIRIN 81 [Concomitant]
     Active Substance: ASPIRIN

REACTIONS (3)
  - Product dose omission issue [Unknown]
  - Headache [Recovered/Resolved]
  - Cough [Recovered/Resolved]
